FAERS Safety Report 6491682-1 (Version None)
Quarter: 2009Q4

REPORT INFORMATION
  Report Type: 
  Country: None (occurrence: None)
  Receive Date: 20091207
  Receipt Date: 20091124
  Transmission Date: 20100525
  Serious: Yes (Hospitalization, Other)
  Sender: FDA-Public Use
  Company Number: 2009AL007518

PATIENT
  Age: 17 Year
  Sex: Male

DRUGS (2)
  1. FEVERALL [Suspect]
     Indication: OVERDOSE
     Dosage: 32000 MG;X1
     Route: 054
     Dates: start: 20070327
  2. CONCERTA [Concomitant]

REACTIONS (5)
  - ASPARTATE AMINOTRANSFERASE INCREASED [None]
  - BLOOD ALKALINE PHOSPHATASE INCREASED [None]
  - BLOOD BILIRUBIN INCREASED [None]
  - HEPATIC FUNCTION ABNORMAL [None]
  - OVERDOSE [None]
